FAERS Safety Report 6127260-3 (Version None)
Quarter: 2009Q1

REPORT INFORMATION
  Report Type: 
  Country: None (occurrence: None)
  Receive Date: 20090319
  Receipt Date: 20090305
  Transmission Date: 20090719
  Serious: Yes (Hospitalization)
  Sender: FDA-Public Use
  Company Number: 02100-JPN-07-0723

PATIENT
  Age: 77 Year
  Sex: Male

DRUGS (34)
  1. PLETAL [Suspect]
     Indication: CEREBELLAR INFARCTION
     Dosage: 100 MB, BID
     Route: 048
     Dates: start: 20070831, end: 20080319
  2. ATORVASTATIN CALCIUM [Concomitant]
  3. GLIMEPIRIDE [Concomitant]
  4. ASPIRIN [Concomitant]
  5. ZOLPIDEM TARTRATE [Concomitant]
  6. ALPRAZOLAM [Concomitant]
  7. NABUMETONE [Concomitant]
  8. EPROSARTAN (EPROSARTAN) [Concomitant]
  9. FLUOXETINE [Concomitant]
  10. MUCOSTA (REBAMIPIDE) [Concomitant]
  11. TAMSULOSIN HCL [Concomitant]
  12. FINASTERIDE [Concomitant]
  13. TEVETEN PLUS (MANUFACTURED BY HANDOK PHARMACEUTICAL) (TEVETEN PLUS (MA [Concomitant]
  14. CODENAL (MANUFACTURED BY SAM-A) (CODENAL (MANUFACTURED BY SAM-A)) [Concomitant]
  15. TOLTERODINE I-TARTRATE (TOLTERODINE I-TARTRATE) [Concomitant]
  16. LACTULOSE [Concomitant]
  17. MAGNESIUM HYDROXIDE TAB [Concomitant]
  18. BETHANECHOL CHLORIDE [Concomitant]
  19. PSEUDOEPHEDRINE HCL [Concomitant]
  20. GINKGO BILOBA LEAF EXTRACT (GINKGO BILOBA LEAF EXTRACT) [Concomitant]
  21. ACETAMINOPHEN [Concomitant]
  22. ALFUZOSIN HYDROCHLORIDE (ALFUZOSIN HYDROCHLORIDE) [Concomitant]
  23. CETRIZINE HYDROCHLORIDE (CETRIZINE HYDROCHLORIDE) [Concomitant]
  24. TERAZOSIN HCL [Concomitant]
  25. MAGNESIUM OXIDE (MAGNESIUM OXIDE) [Concomitant]
  26. LACTOBACILLUS ACIDOPHILUS TYNDALIZED LYOPPHILIZED (LACTOBACILLUS ACIDO [Concomitant]
  27. FELODIPINE [Concomitant]
  28. TELMISARTAN [Concomitant]
  29. ALIBENDOL (ALIBENDOL) [Concomitant]
  30. METFORMIN HYDROCHLOLRIDE (METFORMIN HYDROCHLORIDE) [Concomitant]
  31. CEFCAPENE PIVOXIL HYDROCHLORIDE (CEFCAPENE PIVOXIL HYDROCHLORIDE) [Concomitant]
  32. ACETYLCYSTEINE [Concomitant]
  33. BACILLUS SUBTILIS (BACILLUS SUBTILIS) [Concomitant]
  34. BOEHMITE (BOEHMITE) [Concomitant]

REACTIONS (5)
  - BACK INJURY [None]
  - BENIGN PROSTATIC HYPERPLASIA [None]
  - BLADDER CANCER [None]
  - FALL [None]
  - PROSTATIC MASS [None]
